FAERS Safety Report 15073031 (Version 1)
Quarter: 2018Q3

REPORT INFORMATION
  Report Type: Spontaneous
  Country: SI (occurrence: SI)
  Receive Date: 20180627
  Receipt Date: 20180627
  Transmission Date: 20181010
  Serious: Yes (Life-Threatening, Hospitalization)
  Sender: FDA-Public Use
  Company Number: SI-TEVA-2018-SI-912497

PATIENT
  Age: 48 Year
  Sex: Male

DRUGS (9)
  1. ENDOXAN 1000MG [Suspect]
     Active Substance: CYCLOPHOSPHAMIDE
     Dosage: AMPOULES, DRY
     Dates: start: 20180328, end: 20180328
  2. DOXORUBICIN ACCORD 2 MG/ML [Suspect]
     Active Substance: DOXORUBICIN HYDROCHLORIDE
     Indication: T-CELL LYMPHOMA
     Route: 048
     Dates: start: 20180328, end: 20180328
  3. NEULASTA [Concomitant]
     Active Substance: PEGFILGRASTIM
     Dosage: PFS
     Route: 058
  4. NOLPAZA 20 MG [Concomitant]
  5. LEKADOL [Concomitant]
     Active Substance: ACETAMINOPHEN
  6. MEDROL [Concomitant]
     Active Substance: METHYLPREDNISOLONE
     Dosage: ACCORDING TO THE SCHEME
  7. VALTREX [Concomitant]
     Active Substance: VALACYCLOVIR HYDROCHLORIDE
     Dosage: 1 DOSAGE FORMS DAILY;
  8. EPOSIN 20MG/ML [Suspect]
     Active Substance: ETOPOSIDE
     Indication: T-CELL LYMPHOMA
     Route: 048
     Dates: start: 20180328, end: 20180328
  9. VINCRISTINE 1 MG/1 ML [Suspect]
     Active Substance: VINCRISTINE SULFATE
     Indication: T-CELL LYMPHOMA
     Route: 048
     Dates: start: 20180328, end: 20180328

REACTIONS (2)
  - Febrile neutropenia [Recovering/Resolving]
  - Off label use [Recovering/Resolving]

NARRATIVE: CASE EVENT DATE: 20180406
